FAERS Safety Report 8302334-7 (Version None)
Quarter: 2012Q2

REPORT INFORMATION
  Report Type: 
  Country: None (occurrence: None)
  Receive Date: 20120420
  Receipt Date: 20120419
  Transmission Date: 20120825
  Serious: Yes (Life-Threatening, Hospitalization)
  Sender: FDA-Public Use
  Company Number: FR-JNJFOC-20111204620

PATIENT
  Sex: Male
  Weight: 69 kg

DRUGS (14)
  1. ASPIRIN [Interacting]
     Indication: ILL-DEFINED DISORDER
  2. KETOPROFEN [Concomitant]
  3. KEFANDOL [Concomitant]
     Dates: start: 20111128, end: 20111128
  4. INVANZ [Concomitant]
  5. IRBESARTAN [Concomitant]
  6. CIPROFLOXACIN [Concomitant]
  7. HYDROCHLOROTHIAZIDE [Concomitant]
  8. IRBESARTAN [Concomitant]
  9. ATORVASTATIN [Concomitant]
  10. ROCEPHIN [Concomitant]
  11. PLAVIX [Concomitant]
  12. ALLOPURINOL [Concomitant]
  13. XARELTO [Suspect]
     Indication: KNEE OPERATION
     Route: 048
     Dates: start: 20111129, end: 20111207
  14. GENTAMICIN [Concomitant]

REACTIONS (4)
  - OVERDOSE [None]
  - HAEMATURIA [None]
  - COAGULATION TIME PROLONGED [None]
  - DRUG INTERACTION [None]
